FAERS Safety Report 19155167 (Version 1)
Quarter: 2021Q2

REPORT INFORMATION
  Report Type: Spontaneous
  Country: JP (occurrence: JP)
  Receive Date: 20210420
  Receipt Date: 20210420
  Transmission Date: 20210717
  Serious: Yes (Hospitalization)
  Sender: FDA-Public Use
  Company Number: JP-CELLTRION INC.-2021JP003709

PATIENT

DRUGS (3)
  1. PERJETA [Concomitant]
     Active Substance: PERTUZUMAB
     Indication: PRODUCT USED FOR UNKNOWN INDICATION
     Dosage: UNK
     Route: 042
     Dates: start: 20210316, end: 20210316
  2. TRASTUZUMAB BS NK [Suspect]
     Active Substance: TRASTUZUMAB
     Indication: BREAST CANCER
     Dosage: 212 MG, QD
     Route: 042
     Dates: start: 20210316, end: 20210316
  3. TRASTUZUMAB BS FOR I.V. INFUSION [NK] [Suspect]
     Active Substance: TRASTUZUMAB
     Indication: BREAST CANCER
     Dosage: 300 MG, QD
     Route: 042
     Dates: start: 20210316, end: 20210316

REACTIONS (3)
  - Status asthmaticus [Recovering/Resolving]
  - Off label use [Unknown]
  - Product substitution [Unknown]

NARRATIVE: CASE EVENT DATE: 20210316
